FAERS Safety Report 6944560-5 (Version None)
Quarter: 2010Q3

REPORT INFORMATION
  Report Type: 
  Country: None (occurrence: None)
  Receive Date: 20100827
  Receipt Date: 20100813
  Transmission Date: 20110219
  Serious: Yes (Hospitalization)
  Sender: FDA-Public Use
  Company Number: US-ELI_LILLY_AND_COMPANY-US201008005202

PATIENT
  Sex: Female

DRUGS (4)
  1. FORTEO [Suspect]
     Indication: OSTEOPOROSIS
     Dosage: 20 UG, DAILY (1/D)
     Dates: start: 20090522
  2. FORTEO [Suspect]
     Dosage: 20 UG, DAILY (1/D)
     Dates: start: 20100812
  3. TYLENOL W/ CODEINE NO. 3 [Concomitant]
     Indication: PAIN
  4. LISINOPRIL [Concomitant]
     Dosage: 20 MG, DAILY (1/D)

REACTIONS (7)
  - ASTHENIA [None]
  - DEHYDRATION [None]
  - DRUG DOSE OMISSION [None]
  - GASTRIC DISORDER [None]
  - MALAISE [None]
  - NAUSEA [None]
  - PANCREATITIS [None]
